FAERS Safety Report 24953583 (Version 1)
Quarter: 2025Q1

REPORT INFORMATION
  Report Type: Spontaneous
  Country: US (occurrence: US)
  Receive Date: 20250211
  Receipt Date: 20250211
  Transmission Date: 20250408
  Serious: Yes (Other)
  Sender: ROCHE
  Company Number: US-ROCHE-10000202727

PATIENT
  Sex: Female

DRUGS (1)
  1. ALECENSA [Suspect]
     Active Substance: ALECTINIB HYDROCHLORIDE
     Indication: Lung neoplasm malignant
     Dosage: TAKE 3 CAPSULE BY MOUTH IN MORNING AND 3 CAPSULE IN THE EVENING.
     Route: 048
     Dates: start: 202001

REACTIONS (3)
  - Inflammation [Unknown]
  - Ear inflammation [Unknown]
  - Lung neoplasm malignant [Unknown]
